FAERS Safety Report 4594904-7 (Version None)
Quarter: 2005Q1

REPORT INFORMATION
  Report Type: 
  Country: None (occurrence: None)
  Receive Date: 20050223
  Receipt Date: 20050202
  Transmission Date: 20050727
  Serious: Yes (Other)
  Sender: FDA-Public Use
  Company Number: 2005032468

PATIENT
  Sex: Female

DRUGS (1)
  1. SOLU-MEDRONE (METHYLPREDNISOLONE SODIUM SUCCINATE) [Suspect]
     Indication: INFLAMMATORY BOWEL DISEASE
     Dosage: (1 GRAM, UNKNOWN)

REACTIONS (7)
  - DISORIENTATION [None]
  - FATIGUE [None]
  - FEELING HOT [None]
  - HEADACHE [None]
  - HEART RATE DECREASED [None]
  - HYPERHIDROSIS [None]
  - HYPOTENSION [None]
